FAERS Safety Report 11162225 (Version 1)
Quarter: 2015Q2

REPORT INFORMATION
  Report Type: Spontaneous
  Country: US (occurrence: US)
  Receive Date: 20150604
  Receipt Date: 20150604
  Transmission Date: 20150821
  Serious: No
  Sender: FDA-Public Use
  Company Number: US-SA-2014SA132773

PATIENT
  Age: 62 Year
  Sex: Male

DRUGS (2)
  1. NOVOLOG [Concomitant]
     Active Substance: INSULIN ASPART
  2. LANTUS SOLOSTAR [Suspect]
     Active Substance: INSULIN GLARGINE
     Dosage: START DATE: 3 YEARS 6 MONTHS DOSE:34 UNIT(S)
     Route: 065
     Dates: start: 2011

REACTIONS (1)
  - Malaise [Unknown]
